FAERS Safety Report 4352032-X (Version None)
Quarter: 2004Q2

REPORT INFORMATION
  Report Type: 
  Country: None (occurrence: None)
  Receive Date: 20040503
  Receipt Date: 20040423
  Transmission Date: 20050107
  Serious: Yes (Hospitalization)
  Sender: FDA-Public Use
  Company Number: NO-MERCK-0404NOR00012

PATIENT
  Age: 78 Year
  Sex: Male

DRUGS (7)
  1. CARVEDILOL [Concomitant]
     Indication: CARDIAC FAILURE CONGESTIVE
     Route: 048
  2. DIGITOXIN [Concomitant]
     Indication: CARDIAC FAILURE CONGESTIVE
     Route: 048
  3. VASOTEC [Concomitant]
     Indication: CARDIAC FAILURE CONGESTIVE
     Route: 048
  4. FUROSEMIDE [Concomitant]
     Indication: CARDIAC FAILURE CONGESTIVE
     Route: 048
  5. VIOXX [Suspect]
     Indication: HEADACHE
     Route: 048
  6. SPIRONOLACTONE [Concomitant]
     Indication: CARDIAC FAILURE CONGESTIVE
     Route: 048
  7. WARFARIN SODIUM [Concomitant]
     Indication: AORTIC VALVE REPLACEMENT
     Route: 048

REACTIONS (3)
  - HYPERKALAEMIA [None]
  - INTERNATIONAL NORMALISED RATIO ABNORMAL [None]
  - RENAL FAILURE [None]
